FAERS Safety Report 8595668-2 (Version None)
Quarter: 2012Q3

REPORT INFORMATION
  Report Type: 
  Country: None (occurrence: None)
  Receive Date: 20120815
  Receipt Date: 20120813
  Transmission Date: 20120928
  Serious: Yes (Other)
  Sender: FDA-Public Use
  Company Number: US-ROCHE-1035284

PATIENT
  Sex: Female

DRUGS (3)
  1. ACCUTANE [Suspect]
     Dates: start: 19990921
  2. YAZ [Concomitant]
  3. ACCUTANE [Suspect]
     Indication: PRODUCT USED FOR UNKNOWN INDICATION
     Dates: start: 19980106, end: 19990417

REACTIONS (3)
  - COLITIS ULCERATIVE [None]
  - INFLAMMATORY BOWEL DISEASE [None]
  - ANXIETY [None]
